FAERS Safety Report 24165026 (Version 11)
Quarter: 2025Q4

REPORT INFORMATION
  Report Type: Report from Study
  Country: JP (occurrence: JP)
  Receive Date: 20240802
  Receipt Date: 20251208
  Transmission Date: 20260117
  Serious: Yes (Death, Hospitalization, Other)
  Sender: ROCHE
  Company Number: JP-CHUGAI-2024025655

PATIENT
  Age: 57 Year
  Sex: Male
  Weight: 74.2 kg

DRUGS (161)
  1. HEMLIBRA [Suspect]
     Active Substance: EMICIZUMAB-KXWH
     Indication: Acquired haemophilia
     Route: 058
     Dates: start: 20240110, end: 20240110
  2. HEMLIBRA [Suspect]
     Active Substance: EMICIZUMAB-KXWH
     Route: 058
     Dates: start: 20240111, end: 20240111
  3. HEMLIBRA [Suspect]
     Active Substance: EMICIZUMAB-KXWH
     Route: 058
     Dates: start: 20240117
  4. VONOPRAZAN FUMARATE [Concomitant]
     Active Substance: VONOPRAZAN FUMARATE
     Dosage: UNK
     Route: 065
  5. VONOPRAZAN FUMARATE [Concomitant]
     Active Substance: VONOPRAZAN FUMARATE
     Dosage: UNK
     Route: 065
  6. LEVOTHYROXINE SODIUM [Concomitant]
     Active Substance: LEVOTHYROXINE SODIUM
     Dosage: UNK
     Route: 065
  7. LEVOTHYROXINE SODIUM [Concomitant]
     Active Substance: LEVOTHYROXINE SODIUM
     Dosage: UNK
     Route: 065
  8. LINAGLIPTIN [Concomitant]
     Active Substance: LINAGLIPTIN
     Dosage: UNK
     Route: 065
     Dates: start: 20240213
  9. FERRIC CITRATE ANHYDROUS [Concomitant]
     Active Substance: FERRIC CITRATE ANHYDROUS
     Dosage: UNK
     Route: 065
  10. FERRIC CITRATE ANHYDROUS [Concomitant]
     Active Substance: FERRIC CITRATE ANHYDROUS
     Dosage: UNK
     Route: 065
  11. PREDNISOLONE [Concomitant]
     Active Substance: PREDNISOLONE
     Dosage: 70MG/DAY
     Route: 042
     Dates: start: 20231213, end: 20240110
  12. PREDNISOLONE [Concomitant]
     Active Substance: PREDNISOLONE
     Dosage: 35 MILLIGRAM, QD
     Route: 042
     Dates: start: 20240111, end: 20240113
  13. PREDNISOLONE [Concomitant]
     Active Substance: PREDNISOLONE
     Dosage: 20 MILLIGRAM, QD
     Route: 042
     Dates: start: 20240114, end: 20240115
  14. PREDNISOLONE [Concomitant]
     Active Substance: PREDNISOLONE
     Dosage: 15 MILLIGRAM, QD
     Route: 042
     Dates: start: 20240116, end: 20240117
  15. PREDNISOLONE [Concomitant]
     Active Substance: PREDNISOLONE
     Dosage: 10 MILLIGRAM, QD
     Route: 042
     Dates: start: 20240118, end: 20240119
  16. PREDNISOLONE [Concomitant]
     Active Substance: PREDNISOLONE
     Dosage: 5 MILLIGRAM, QD
     Route: 042
     Dates: start: 20240120, end: 20240123
  17. PREDNISOLONE [Concomitant]
     Active Substance: PREDNISOLONE
     Dosage: 2.5MG/DAY
     Route: 042
     Dates: start: 20240124, end: 20240129
  18. PREDNISOLONE [Concomitant]
     Active Substance: PREDNISOLONE
     Dosage: 1MG/DAY
     Route: 042
     Dates: start: 20240130, end: 20240202
  19. BYCLOT [Concomitant]
     Active Substance: COAGULATION FACTOR VII HUMAN\COAGULATION FACTOR X HUMAN
     Indication: Haemorrhage
     Dosage: UNK
     Route: 042
     Dates: start: 20231215, end: 20250402
  20. NOVOSEVEN [Concomitant]
     Active Substance: COAGULATION FACTOR VIIA RECOMBINANT HUMAN
     Indication: Haemorrhage
     Dosage: UNK
     Route: 042
     Dates: start: 20231222, end: 20250409
  21. CANCIDAS [Concomitant]
     Active Substance: CASPOFUNGIN ACETATE
     Dosage: 50 MILLIGRAM, QD
     Route: 042
     Dates: start: 20231228, end: 20240104
  22. CANCIDAS [Concomitant]
     Active Substance: CASPOFUNGIN ACETATE
     Dosage: 50 MILLIGRAM, QD
     Route: 042
     Dates: start: 20240108, end: 20240109
  23. CANCIDAS [Concomitant]
     Active Substance: CASPOFUNGIN ACETATE
     Dosage: 50 MILLIGRAM, QD
     Route: 042
     Dates: start: 20240111, end: 20240115
  24. CANCIDAS [Concomitant]
     Active Substance: CASPOFUNGIN ACETATE
     Dosage: 50 MILLIGRAM, SINGLE
     Route: 042
     Dates: start: 20240117, end: 20240117
  25. CEFAZOLIN SODIUM [Concomitant]
     Active Substance: CEFAZOLIN SODIUM
     Dosage: 100 MILLILITER, QD
     Route: 042
     Dates: start: 20231229, end: 20240101
  26. CEFAZOLIN SODIUM [Concomitant]
     Active Substance: CEFAZOLIN SODIUM
     Dosage: 1 GRAM, BID
     Route: 042
     Dates: start: 20240103, end: 20240105
  27. CEFAZOLIN SODIUM [Concomitant]
     Active Substance: CEFAZOLIN SODIUM
     Dosage: 1 GRAM, QD
     Route: 042
     Dates: start: 20240108, end: 20240109
  28. CEFAZOLIN SODIUM [Concomitant]
     Active Substance: CEFAZOLIN SODIUM
     Dosage: 1 GRAM, QD
     Route: 042
     Dates: start: 20240111, end: 20240115
  29. CEFAZOLIN SODIUM [Concomitant]
     Active Substance: CEFAZOLIN SODIUM
     Dosage: 1 GRAM, QD
     Route: 042
     Dates: start: 20240117, end: 20240123
  30. CEFAZOLIN SODIUM [Concomitant]
     Active Substance: CEFAZOLIN SODIUM
     Dosage: 1 GRAM, QD
     Route: 042
     Dates: start: 20240724, end: 20240728
  31. CEFAZOLIN SODIUM [Concomitant]
     Active Substance: CEFAZOLIN SODIUM
     Dosage: 1 GRAM, QD
     Route: 042
     Dates: start: 20250402, end: 20250404
  32. CEFAZOLIN SODIUM [Concomitant]
     Active Substance: CEFAZOLIN SODIUM
     Dosage: 1 GRAM, QD
     Route: 042
     Dates: start: 20250406, end: 20250409
  33. FEIBA [Concomitant]
     Active Substance: ANTI-INHIBITOR COAGULANT COMPLEX
     Dosage: 140 MILLILITER
     Route: 050
     Dates: start: 20240105, end: 20240106
  34. LANSOPRAZOLE [Concomitant]
     Active Substance: LANSOPRAZOLE
     Dosage: 30 MILLIGRAM, BID
     Route: 042
     Dates: start: 20240108, end: 20240109
  35. LANSOPRAZOLE [Concomitant]
     Active Substance: LANSOPRAZOLE
     Dosage: 30 MILLIGRAM, BID
     Route: 042
     Dates: start: 20240111, end: 20240111
  36. GANCICLOVIR [Concomitant]
     Active Substance: GANCICLOVIR
     Dosage: 80 MILLIGRAM, SINGLE
     Route: 042
     Dates: start: 20240122, end: 20240122
  37. GANCICLOVIR [Concomitant]
     Active Substance: GANCICLOVIR
     Dosage: 80 MILLIGRAM, SINGLE
     Route: 042
     Dates: start: 20240124, end: 20240124
  38. GANCICLOVIR [Concomitant]
     Active Substance: GANCICLOVIR
     Dosage: 80 MILLIGRAM, SINGLE
     Route: 042
     Dates: start: 20240126, end: 20240126
  39. GANCICLOVIR [Concomitant]
     Active Substance: GANCICLOVIR
     Dosage: 80 MILLIGRAM, SINGLE
     Route: 042
     Dates: start: 20240129, end: 20240129
  40. GANCICLOVIR [Concomitant]
     Active Substance: GANCICLOVIR
     Dosage: 80 MILLIGRAM, SINGLE
     Route: 042
     Dates: start: 20240131, end: 20240131
  41. GANCICLOVIR [Concomitant]
     Active Substance: GANCICLOVIR
     Dosage: 80 MILLIGRAM, SINGLE
     Route: 042
     Dates: start: 20240202, end: 20240202
  42. GANCICLOVIR [Concomitant]
     Active Substance: GANCICLOVIR
     Dosage: 80 MILLIGRAM, SINGLE
     Route: 042
     Dates: start: 20240205, end: 20240205
  43. GANCICLOVIR [Concomitant]
     Active Substance: GANCICLOVIR
     Dosage: 80 MILLIGRAM, SINGLE
     Route: 042
     Dates: start: 20240207, end: 20240207
  44. GANCICLOVIR [Concomitant]
     Active Substance: GANCICLOVIR
     Dosage: 80 MILLIGRAM, SINGLE
     Route: 042
     Dates: start: 20240209, end: 20240209
  45. DAPTOMYCIN [Concomitant]
     Active Substance: DAPTOMYCIN
     Dosage: 455 MILLIGRAM, SINGLE
     Route: 042
     Dates: start: 20240126, end: 20240126
  46. DAPTOMYCIN [Concomitant]
     Active Substance: DAPTOMYCIN
     Dosage: 455 MILLIGRAM, SINGLE
     Route: 042
     Dates: start: 20240216, end: 20240216
  47. DAPTOMYCIN [Concomitant]
     Active Substance: DAPTOMYCIN
     Dosage: 455 MILLIGRAM, SINGLE
     Route: 042
     Dates: start: 20240219, end: 20240219
  48. DAPTOMYCIN [Concomitant]
     Active Substance: DAPTOMYCIN
     Dosage: 455 MILLIGRAM, SINGLE
     Route: 042
     Dates: start: 20240221, end: 20240221
  49. DAPTOMYCIN [Concomitant]
     Active Substance: DAPTOMYCIN
     Dosage: 455 MILLIGRAM, SINGLE
     Route: 042
     Dates: start: 20240223, end: 20240223
  50. DAPTOMYCIN [Concomitant]
     Active Substance: DAPTOMYCIN
     Dosage: 455 MILLIGRAM, SINGLE
     Route: 042
     Dates: start: 20240226, end: 20240226
  51. DAPTOMYCIN [Concomitant]
     Active Substance: DAPTOMYCIN
     Dosage: 455 MILLIGRAM, SINGLE
     Route: 042
     Dates: start: 20240228, end: 20240228
  52. DAPTOMYCIN [Concomitant]
     Active Substance: DAPTOMYCIN
     Dosage: 455 MILLIGRAM, SINGLE
     Route: 042
     Dates: start: 20240301, end: 20240301
  53. DAPTOMYCIN [Concomitant]
     Active Substance: DAPTOMYCIN
     Dosage: 455 MILLIGRAM, SINGLE
     Route: 042
     Dates: start: 20240304, end: 20240304
  54. DAPTOMYCIN [Concomitant]
     Active Substance: DAPTOMYCIN
     Dosage: 455 MILLIGRAM, SINGLE
     Route: 042
     Dates: start: 20240306, end: 20240306
  55. DAPTOMYCIN [Concomitant]
     Active Substance: DAPTOMYCIN
     Dosage: 455 MILLIGRAM, SINGLE
     Route: 042
     Dates: start: 20240308, end: 20240308
  56. DAPTOMYCIN [Concomitant]
     Active Substance: DAPTOMYCIN
     Dosage: 455 MILLIGRAM, SINGLE
     Route: 042
     Dates: start: 20240311, end: 20240311
  57. DAPTOMYCIN [Concomitant]
     Active Substance: DAPTOMYCIN
     Dosage: 455 MILLIGRAM, SINGLE
     Route: 042
     Dates: start: 20240313, end: 20240313
  58. DAPTOMYCIN [Concomitant]
     Active Substance: DAPTOMYCIN
     Dosage: 300 MILLIGRAM, SINGLE
     Route: 042
     Dates: start: 20240410, end: 20240410
  59. DAPTOMYCIN [Concomitant]
     Active Substance: DAPTOMYCIN
     Dosage: 300 MILLIGRAM, SINGLE
     Route: 042
     Dates: start: 20240412, end: 20240412
  60. AMPICILLIN SODIUM [Concomitant]
     Active Substance: AMPICILLIN SODIUM
     Dosage: 1 GRAM, BID
     Route: 042
     Dates: start: 20240128, end: 20240128
  61. AMPICILLIN SODIUM [Concomitant]
     Active Substance: AMPICILLIN SODIUM
     Dosage: 1 GRAM, BID
     Route: 042
     Dates: start: 20240131, end: 20240206
  62. AMPICILLIN SODIUM [Concomitant]
     Active Substance: AMPICILLIN SODIUM
     Dosage: 1 GRAM, SINGLE
     Route: 042
     Dates: start: 20240215, end: 20240215
  63. AMPICILLIN SODIUM [Concomitant]
     Active Substance: AMPICILLIN SODIUM
     Dosage: 1 GRAM, BID
     Route: 042
     Dates: start: 20240217, end: 20240219
  64. SODIUM PHOSPHATE [SODIUM PHOSPHATE DIBASIC;SODIUM PHOSPHATE MONOBASIC] [Concomitant]
     Dosage: 40 MILLILITER, SINGLE
     Route: 042
     Dates: start: 20240208, end: 20240208
  65. SODIUM PHOSPHATE [SODIUM PHOSPHATE DIBASIC;SODIUM PHOSPHATE MONOBASIC] [Concomitant]
     Dosage: 40 MILLILITER, SINGLE
     Route: 042
     Dates: start: 20240222, end: 20240222
  66. SODIUM PHOSPHATE [SODIUM PHOSPHATE DIBASIC;SODIUM PHOSPHATE MONOBASIC] [Concomitant]
     Dosage: 40 MILLILITER, SINGLE
     Route: 042
     Dates: start: 20240301, end: 20240301
  67. SODIUM PHOSPHATE [SODIUM PHOSPHATE DIBASIC;SODIUM PHOSPHATE MONOBASIC] [Concomitant]
     Dosage: 40 MILLILITER, SINGLE
     Route: 042
     Dates: start: 20240306, end: 20240306
  68. SODIUM PHOSPHATE [SODIUM PHOSPHATE DIBASIC;SODIUM PHOSPHATE MONOBASIC] [Concomitant]
     Dosage: 40 MILLILITER, SINGLE
     Route: 042
     Dates: start: 20240313, end: 20240313
  69. SODIUM PHOSPHATE [SODIUM PHOSPHATE DIBASIC;SODIUM PHOSPHATE MONOBASIC] [Concomitant]
     Dosage: 40 MILLILITER, SINGLE
     Route: 042
     Dates: start: 20240322, end: 20240322
  70. TRANSAMIN [Concomitant]
     Active Substance: TRANEXAMIC ACID
     Indication: Haemorrhage
     Dosage: 250 MILLIGRAM, BID
     Route: 042
     Dates: start: 20240210, end: 20240210
  71. TRANSAMIN [Concomitant]
     Active Substance: TRANEXAMIC ACID
     Dosage: 250 MILLIGRAM, QD
     Route: 042
     Dates: start: 20240211, end: 20240223
  72. TRANSAMIN [Concomitant]
     Active Substance: TRANEXAMIC ACID
     Dosage: 250 MILLIGRAM, QD
     Route: 042
     Dates: start: 20240322, end: 20240323
  73. TRANSAMIN [Concomitant]
     Active Substance: TRANEXAMIC ACID
     Dosage: 250 MILLIGRAM, QD
     Route: 042
     Dates: start: 20240403, end: 20240404
  74. TRANSAMIN [Concomitant]
     Active Substance: TRANEXAMIC ACID
     Dosage: 250 MILLIGRAM, QD
     Route: 042
     Dates: start: 20250109, end: 20250110
  75. TRANSAMIN [Concomitant]
     Active Substance: TRANEXAMIC ACID
     Dosage: 250 MILLIGRAM, BID
     Route: 042
     Dates: start: 20250111, end: 20250112
  76. TRANSAMIN [Concomitant]
     Active Substance: TRANEXAMIC ACID
     Dosage: 250 MILLIGRAM, QD
     Route: 042
     Dates: start: 20250113, end: 20250113
  77. TRANSAMIN [Concomitant]
     Active Substance: TRANEXAMIC ACID
     Dosage: 250 MILLIGRAM, BID
     Route: 042
     Dates: start: 20250114, end: 20250114
  78. TRANSAMIN [Concomitant]
     Active Substance: TRANEXAMIC ACID
     Dosage: 250 MILLIGRAM, QD
     Route: 042
     Dates: start: 20250115, end: 20250115
  79. TRANSAMIN [Concomitant]
     Active Substance: TRANEXAMIC ACID
     Dosage: 250 MILLIGRAM, BID
     Route: 042
     Dates: start: 20250116, end: 20250116
  80. TRANSAMIN [Concomitant]
     Active Substance: TRANEXAMIC ACID
     Dosage: 250 MILLIGRAM, QD
     Route: 042
     Dates: start: 20250117, end: 20250117
  81. TRANSAMIN [Concomitant]
     Active Substance: TRANEXAMIC ACID
     Dosage: 250 MILLIGRAM, BID
     Route: 042
     Dates: start: 20250118, end: 20250119
  82. TRANSAMIN [Concomitant]
     Active Substance: TRANEXAMIC ACID
     Dosage: 250 MILLIGRAM, QD
     Route: 042
     Dates: start: 20250120, end: 20250120
  83. TRANSAMIN [Concomitant]
     Active Substance: TRANEXAMIC ACID
     Dosage: 250 MILLIGRAM, BID
     Route: 042
     Dates: start: 20250121, end: 20250123
  84. TRANSAMIN [Concomitant]
     Active Substance: TRANEXAMIC ACID
     Dosage: 250 MILLIGRAM, QD
     Route: 042
     Dates: start: 20250124, end: 20250124
  85. TRANSAMIN [Concomitant]
     Active Substance: TRANEXAMIC ACID
     Dosage: 250 MILLIGRAM, BID
     Route: 042
     Dates: start: 20250125, end: 20250126
  86. TRANSAMIN [Concomitant]
     Active Substance: TRANEXAMIC ACID
     Dosage: 250 MILLIGRAM, QD
     Route: 042
     Dates: start: 20250127, end: 20250127
  87. TRANSAMIN [Concomitant]
     Active Substance: TRANEXAMIC ACID
     Dosage: 250 MILLIGRAM, QD
     Route: 042
     Dates: start: 20250402, end: 20250404
  88. TRANSAMIN [Concomitant]
     Active Substance: TRANEXAMIC ACID
     Dosage: 250 MILLIGRAM, BID
     Route: 042
     Dates: start: 20250405, end: 20250406
  89. TRANSAMIN [Concomitant]
     Active Substance: TRANEXAMIC ACID
     Dosage: 250 MILLIGRAM, QD
     Route: 042
     Dates: start: 20250407, end: 20250407
  90. DEXTROSE [Concomitant]
     Active Substance: DEXTROSE MONOHYDRATE
     Dosage: 250 MILLILITER, SINGLE
     Route: 042
     Dates: start: 20240226, end: 20240226
  91. DEXTROSE [Concomitant]
     Active Substance: DEXTROSE MONOHYDRATE
     Dosage: 250 MILLILITER, SINGLE
     Route: 042
     Dates: start: 20240308, end: 20240308
  92. DEXTROSE [Concomitant]
     Active Substance: DEXTROSE MONOHYDRATE
     Dosage: 250 MILLILITER, SINGLE
     Route: 042
     Dates: start: 20240316, end: 20240316
  93. DEXTROSE [Concomitant]
     Active Substance: DEXTROSE MONOHYDRATE
     Dosage: 250 MILLILITER, SINGLE
     Route: 042
     Dates: start: 20240318, end: 20240318
  94. DEXTROSE [Concomitant]
     Active Substance: DEXTROSE MONOHYDRATE
     Dosage: 500 MILLILITER, BID
     Route: 042
     Dates: start: 20240725, end: 20240725
  95. KCL [Concomitant]
     Active Substance: POTASSIUM CHLORIDE
     Dosage: 20 MILLILITER, SINGLE
     Route: 042
     Dates: start: 20240215, end: 20240215
  96. KCL [Concomitant]
     Active Substance: POTASSIUM CHLORIDE
     Dosage: 20 MILLILITER, SINGLE
     Route: 042
     Dates: start: 20240226, end: 20240226
  97. KCL [Concomitant]
     Active Substance: POTASSIUM CHLORIDE
     Dosage: 20 MILLILITER, SINGLE
     Route: 042
     Dates: start: 20240308, end: 20240308
  98. KCL [Concomitant]
     Active Substance: POTASSIUM CHLORIDE
     Dosage: 20 MILLILITER, SINGLE
     Route: 042
     Dates: start: 20240316, end: 20240316
  99. KCL [Concomitant]
     Active Substance: POTASSIUM CHLORIDE
     Dosage: 20 MILLILITER, SINGLE
     Route: 042
     Dates: start: 20240318, end: 20240318
  100. CALCIUM GLUCONATE\DEXTROSE\MAGNESIUM SULFATE\POTASSIUM ACETATE\POTASSI [Concomitant]
     Active Substance: CALCIUM GLUCONATE\DEXTROSE\MAGNESIUM SULFATE\POTASSIUM ACETATE\POTASSIUM PHOSPHATE, DIBASIC\ZINC SUL
     Dosage: 500 MILLILITER, SINGLE
     Route: 042
     Dates: start: 20240109, end: 20240109
  101. CALCIUM GLUCONATE\DEXTROSE\MAGNESIUM SULFATE\POTASSIUM ACETATE\POTASSI [Concomitant]
     Active Substance: CALCIUM GLUCONATE\DEXTROSE\MAGNESIUM SULFATE\POTASSIUM ACETATE\POTASSIUM PHOSPHATE, DIBASIC\ZINC SUL
     Dosage: 500 MILLILITER, SINGLE
     Route: 042
     Dates: start: 20240111, end: 20240111
  102. CALCIUM GLUCONATE\DEXTROSE\MAGNESIUM SULFATE\POTASSIUM ACETATE\POTASSI [Concomitant]
     Active Substance: CALCIUM GLUCONATE\DEXTROSE\MAGNESIUM SULFATE\POTASSIUM ACETATE\POTASSIUM PHOSPHATE, DIBASIC\ZINC SUL
     Dosage: 500 MILLILITER, QD
     Route: 042
     Dates: start: 20240113, end: 20240115
  103. CALCIUM GLUCONATE\DEXTROSE\MAGNESIUM SULFATE\POTASSIUM ACETATE\POTASSI [Concomitant]
     Active Substance: CALCIUM GLUCONATE\DEXTROSE\MAGNESIUM SULFATE\POTASSIUM ACETATE\POTASSIUM PHOSPHATE, DIBASIC\ZINC SUL
     Dosage: 500 MILLILITER, QD
     Route: 042
     Dates: start: 20240117, end: 20240129
  104. CALCIUM GLUCONATE\DEXTROSE\MAGNESIUM SULFATE\POTASSIUM ACETATE\POTASSI [Concomitant]
     Active Substance: CALCIUM GLUCONATE\DEXTROSE\MAGNESIUM SULFATE\POTASSIUM ACETATE\POTASSIUM PHOSPHATE, DIBASIC\ZINC SUL
     Dosage: 500 MILLILITER, QD
     Route: 042
     Dates: start: 20240131, end: 20240206
  105. CALCIUM GLUCONATE\DEXTROSE\MAGNESIUM SULFATE\POTASSIUM ACETATE\POTASSI [Concomitant]
     Active Substance: CALCIUM GLUCONATE\DEXTROSE\MAGNESIUM SULFATE\POTASSIUM ACETATE\POTASSIUM PHOSPHATE, DIBASIC\ZINC SUL
     Dosage: 500 MILLILITER, QD
     Route: 042
     Dates: start: 20240209, end: 20240220
  106. KIDMIN [ALANINE;ARGININE;ASPARTIC ACID;CYSTEINE;GLUTAMIC ACID;HISTIDIN [Concomitant]
     Dosage: 400 MILLILITER, SINGLE
     Route: 042
     Dates: start: 20240109, end: 20240109
  107. KIDMIN [ALANINE;ARGININE;ASPARTIC ACID;CYSTEINE;GLUTAMIC ACID;HISTIDIN [Concomitant]
     Dosage: 400 MILLILITER, SINGLE
     Route: 042
     Dates: start: 20240111, end: 20240111
  108. KIDMIN [ALANINE;ARGININE;ASPARTIC ACID;CYSTEINE;GLUTAMIC ACID;HISTIDIN [Concomitant]
     Dosage: 400 MILLILITER, QD
     Route: 042
     Dates: start: 20240113, end: 20240115
  109. KIDMIN [ALANINE;ARGININE;ASPARTIC ACID;CYSTEINE;GLUTAMIC ACID;HISTIDIN [Concomitant]
     Dosage: 400 MILLILITER, QD
     Route: 042
     Dates: start: 20240117, end: 20240129
  110. KIDMIN [ALANINE;ARGININE;ASPARTIC ACID;CYSTEINE;GLUTAMIC ACID;HISTIDIN [Concomitant]
     Dosage: 400 MILLILITER, QD
     Route: 042
     Dates: start: 20240131, end: 20240206
  111. KIDMIN [ALANINE;ARGININE;ASPARTIC ACID;CYSTEINE;GLUTAMIC ACID;HISTIDIN [Concomitant]
     Dosage: 400 MILLILITER, QD
     Route: 042
     Dates: start: 20240209, end: 20240220
  112. VITAMINS NOS [Concomitant]
     Active Substance: VITAMINS
     Dosage: 1 DOSAGE FORM, SINGLE
     Route: 042
     Dates: start: 20240109, end: 20240109
  113. VITAMINS NOS [Concomitant]
     Active Substance: VITAMINS
     Dosage: 1 DOSAGE FORM, SINGLE
     Route: 042
     Dates: start: 20240111, end: 20240111
  114. VITAMINS NOS [Concomitant]
     Active Substance: VITAMINS
     Dosage: 1 DOSAGE FORM, QD
     Route: 042
     Dates: start: 20240113, end: 20240115
  115. VITAMINS NOS [Concomitant]
     Active Substance: VITAMINS
     Dosage: 1 DOSAGE FORM, QD
     Route: 042
     Dates: start: 20240117, end: 20240129
  116. VITAMINS NOS [Concomitant]
     Active Substance: VITAMINS
     Dosage: 1 DOSAGE FORM, QD
     Route: 042
     Dates: start: 20240131, end: 20240206
  117. VITAMINS NOS [Concomitant]
     Active Substance: VITAMINS
     Dosage: 1 DOSAGE FORM, QD
     Route: 042
     Dates: start: 20240209, end: 20240220
  118. VOLVIX [Concomitant]
     Dosage: 2 MILLILITER, SINGLE
     Route: 042
     Dates: start: 20240109, end: 20240109
  119. VOLVIX [Concomitant]
     Dosage: 2 MILLILITER, SINGLE
     Route: 042
     Dates: start: 20240111, end: 20240111
  120. VOLVIX [Concomitant]
     Dosage: 2 MILLILITER, QD
     Route: 042
     Dates: start: 20240113, end: 20240115
  121. VOLVIX [Concomitant]
     Dosage: 2 MILLILITER, QD
     Route: 042
     Dates: start: 20240117, end: 20240129
  122. VOLVIX [Concomitant]
     Dosage: 2 MILLILITER, QD
     Route: 042
     Dates: start: 20240131, end: 20240206
  123. VOLVIX [Concomitant]
     Dosage: 2 MILLILITER, QD
     Route: 042
     Dates: start: 20240209, end: 20240220
  124. SODIUM CHLORIDE [Concomitant]
     Active Substance: SODIUM CHLORIDE
     Dosage: 20 MILLILITER, SINGLE
     Route: 042
     Dates: start: 20240109, end: 20240109
  125. SODIUM CHLORIDE [Concomitant]
     Active Substance: SODIUM CHLORIDE
     Dosage: 20 MILLILITER, SINGLE
     Route: 042
     Dates: start: 20240111, end: 20240111
  126. SODIUM CHLORIDE [Concomitant]
     Active Substance: SODIUM CHLORIDE
     Dosage: 20 MILLILITER, QD
     Route: 042
     Dates: start: 20240113, end: 20240115
  127. SODIUM CHLORIDE [Concomitant]
     Active Substance: SODIUM CHLORIDE
     Dosage: 20 MILLILITER, QD
     Route: 042
     Dates: start: 20240117, end: 20240129
  128. SODIUM CHLORIDE [Concomitant]
     Active Substance: SODIUM CHLORIDE
     Dosage: 20 MILLILITER, QD
     Route: 042
     Dates: start: 20240131, end: 20240206
  129. SODIUM CHLORIDE [Concomitant]
     Active Substance: SODIUM CHLORIDE
     Dosage: 20 MILLILITER, QD
     Route: 042
     Dates: start: 20240209, end: 20240220
  130. SODIUM CHLORIDE [Concomitant]
     Active Substance: SODIUM CHLORIDE
     Dosage: 20 MILLILITER, SINGLE
     Route: 042
     Dates: start: 20250407, end: 20250407
  131. SODIUM CHLORIDE [Concomitant]
     Active Substance: SODIUM CHLORIDE
     Dosage: 20 MILLILITER, SINGLE
     Route: 042
     Dates: start: 20250409, end: 20250409
  132. SODIUM CHLORIDE [Concomitant]
     Active Substance: SODIUM CHLORIDE
     Dosage: 20 MILLILITER, SINGLE
     Route: 042
     Dates: start: 20250411, end: 20250411
  133. HUMULIN R [Concomitant]
     Active Substance: INSULIN HUMAN
     Dosage: 32 INTERNATIONAL UNIT, SINGLE
     Route: 042
     Dates: start: 20240109, end: 20240109
  134. HUMULIN R [Concomitant]
     Active Substance: INSULIN HUMAN
     Dosage: 32 INTERNATIONAL UNIT, SINGLE
     Route: 042
     Dates: start: 20240111, end: 20240111
  135. HUMULIN R [Concomitant]
     Active Substance: INSULIN HUMAN
     Dosage: 25 INTERNATIONAL UNIT, QD
     Route: 042
     Dates: start: 20240113, end: 20240115
  136. HUMULIN R [Concomitant]
     Active Substance: INSULIN HUMAN
     Dosage: 25 INTERNATIONAL UNIT, QD
     Route: 042
     Dates: start: 20240117, end: 20240122
  137. HUMULIN R [Concomitant]
     Active Substance: INSULIN HUMAN
     Dosage: 8 INTERNATIONAL UNIT, QD
     Route: 042
     Dates: start: 20240123, end: 20240129
  138. HUMULIN R [Concomitant]
     Active Substance: INSULIN HUMAN
     Dosage: 8 INTERNATIONAL UNIT, QD
     Route: 042
     Dates: start: 20240131, end: 20240206
  139. HUMULIN R [Concomitant]
     Active Substance: INSULIN HUMAN
     Dosage: 8 INTERNATIONAL UNIT, QD
     Route: 042
     Dates: start: 20240209, end: 20240220
  140. DARBEPOETIN ALFA [Concomitant]
     Active Substance: DARBEPOETIN ALFA
     Dosage: 120 MICROGRAM, QD
     Route: 065
     Dates: start: 20240226, end: 20240226
  141. DARBEPOETIN ALFA [Concomitant]
     Active Substance: DARBEPOETIN ALFA
     Dosage: 120 MICROGRAM, QD
     Route: 065
     Dates: start: 20240304, end: 20240304
  142. DARBEPOETIN ALFA [Concomitant]
     Active Substance: DARBEPOETIN ALFA
     Dosage: 120 MICROGRAM, QD
     Route: 065
     Dates: start: 20240311, end: 20240311
  143. DARBEPOETIN ALFA [Concomitant]
     Active Substance: DARBEPOETIN ALFA
     Dosage: 120 MICROGRAM, QD
     Route: 065
     Dates: start: 20240318, end: 20240318
  144. DARBEPOETIN ALFA [Concomitant]
     Active Substance: DARBEPOETIN ALFA
     Dosage: 120 MICROGRAM, QD
     Route: 065
     Dates: start: 20240325, end: 20240325
  145. DARBEPOETIN ALFA [Concomitant]
     Active Substance: DARBEPOETIN ALFA
     Dosage: 120 MICROGRAM, QD
     Route: 065
     Dates: start: 20240401, end: 20240401
  146. DARBEPOETIN ALFA [Concomitant]
     Active Substance: DARBEPOETIN ALFA
     Dosage: 120 MICROGRAM, QD
     Route: 065
     Dates: start: 20240408, end: 20240408
  147. DARBEPOETIN ALFA [Concomitant]
     Active Substance: DARBEPOETIN ALFA
     Dosage: 20 MICROGRAM, QD
     Route: 065
     Dates: start: 20250113, end: 20250113
  148. DARBEPOETIN ALFA [Concomitant]
     Active Substance: DARBEPOETIN ALFA
     Dosage: 20 MICROGRAM, QD
     Route: 065
     Dates: start: 20250120, end: 20250120
  149. DARBEPOETIN ALFA [Concomitant]
     Active Substance: DARBEPOETIN ALFA
     Dosage: 40 MICROGRAM, QD
     Route: 065
     Dates: start: 20250127, end: 20250127
  150. DARBEPOETIN ALFA [Concomitant]
     Active Substance: DARBEPOETIN ALFA
     Dosage: 60 MICROGRAM, QD
     Route: 065
     Dates: start: 20250407, end: 20250407
  151. FILGRASTIM [Concomitant]
     Active Substance: FILGRASTIM
     Dosage: 75 MICROGRAM, QD
     Route: 050
     Dates: start: 20240311, end: 20240312
  152. CEFEPIME HYDROCHLORIDE [Concomitant]
     Active Substance: CEFEPIME HYDROCHLORIDE
     Dosage: 1000 MILLIGRAM, QD
     Route: 042
     Dates: start: 20240314, end: 20240315
  153. CEFEPIME HYDROCHLORIDE [Concomitant]
     Active Substance: CEFEPIME HYDROCHLORIDE
     Dosage: 500 MILLIGRAM, QD
     Route: 042
     Dates: start: 20240316, end: 20240329
  154. SOLDEM 6 [Concomitant]
     Dosage: 500 MILLILITER, QD
     Route: 042
     Dates: start: 20250402, end: 20250402
  155. SOLDEM 6 [Concomitant]
     Dosage: 500 MILLILITER, QD
     Route: 042
     Dates: start: 20250410, end: 20250413
  156. NOREPINEPHRINE [Concomitant]
     Active Substance: NOREPINEPHRINE
     Dosage: 3 MILLIGRAM, QD
     Route: 065
     Dates: start: 20250403, end: 20250403
  157. ETILEFRINE HYDROCHLORIDE [Concomitant]
     Active Substance: ETILEFRINE HYDROCHLORIDE
     Dosage: 10 MILLIGRAM, QD
     Route: 065
     Dates: start: 20250407, end: 20250409
  158. ETILEFRINE HYDROCHLORIDE [Concomitant]
     Active Substance: ETILEFRINE HYDROCHLORIDE
     Dosage: 10 MILLIGRAM, QD
     Route: 065
     Dates: start: 20250411, end: 20250411
  159. XYLOCAINE [Concomitant]
     Active Substance: LIDOCAINE HYDROCHLORIDE
     Dosage: 20 MILLILITER, SINGLE
     Route: 050
     Dates: start: 20250409, end: 20250409
  160. ACETAMINOPHEN [Concomitant]
     Active Substance: ACETAMINOPHEN
     Dosage: UNK
     Route: 042
     Dates: start: 20250409, end: 20250413
  161. DEXTROSE [Concomitant]
     Active Substance: DEXTROSE MONOHYDRATE
     Dosage: UNK
     Route: 050
     Dates: start: 20250410, end: 20250413

REACTIONS (11)
  - Haemorrhage subcutaneous [Not Recovered/Not Resolved]
  - Cardiac tamponade [Recovered/Resolved]
  - Gastrointestinal erosion [Unknown]
  - Enterocolitis [Unknown]
  - Haemothorax [Unknown]
  - Activated partial thromboplastin time prolonged [Not Recovered/Not Resolved]
  - Cardiac failure [Fatal]
  - Melaena [Recovered/Resolved]
  - Pleural effusion [Unknown]
  - Catheter site haemorrhage [Recovered/Resolved]
  - End stage renal disease [Fatal]

NARRATIVE: CASE EVENT DATE: 20240722
